FAERS Safety Report 4954815-1 (Version None)
Quarter: 2006Q1

REPORT INFORMATION
  Report Type: 
  Country: None (occurrence: None)
  Receive Date: 20060327
  Receipt Date: 20050218
  Transmission Date: 20060701
  Serious: Yes (Hospitalization, Disabling)
  Sender: FDA-Public Use
  Company Number: US-MERCK-0502USA02843

PATIENT
  Age: 48 Year
  Sex: Female
  Weight: 86 kg

DRUGS (4)
  1. VIOXX [Suspect]
     Indication: ARTHRITIS
     Route: 048
     Dates: start: 20000501, end: 20030601
  2. PRILOSEC [Concomitant]
     Route: 065
  3. PREMARIN [Concomitant]
     Route: 065
  4. TOPROL-XL [Concomitant]
     Route: 065

REACTIONS (19)
  - ANGINA PECTORIS [None]
  - ARTHROPATHY [None]
  - CARDIOVASCULAR DISORDER [None]
  - CHEST PAIN [None]
  - CHOLELITHIASIS [None]
  - CONSTIPATION [None]
  - DEPRESSION [None]
  - DIABETES MELLITUS [None]
  - DIABETES MELLITUS INSULIN-DEPENDENT [None]
  - DIARRHOEA [None]
  - DYSPNOEA [None]
  - GASTROOESOPHAGEAL REFLUX DISEASE [None]
  - HYPERLIPIDAEMIA [None]
  - HYSTERECTOMY [None]
  - MIGRAINE [None]
  - MYOCARDIAL INFARCTION [None]
  - SUICIDAL IDEATION [None]
  - SYNCOPE [None]
  - UTERINE DISORDER [None]
